FAERS Safety Report 24637292 (Version 1)
Quarter: 2024Q4

REPORT INFORMATION
  Report Type: Spontaneous
  Country: CA (occurrence: CA)
  Receive Date: 20241119
  Receipt Date: 20241119
  Transmission Date: 20250114
  Serious: Yes (Death, Life-Threatening)
  Sender: CSL BEHRING
  Company Number: CA-BEH-2024185366

PATIENT
  Age: 80 Year
  Sex: Female

DRUGS (1)
  1. ALBUMIN HUMAN [Suspect]
     Active Substance: ALBUMIN HUMAN
     Indication: Blood albumin decreased
     Dosage: 20 ML, QD
     Route: 042

REACTIONS (2)
  - Hypotension [Fatal]
  - Intensive care [Fatal]
